FAERS Safety Report 8226063-3 (Version None)
Quarter: 2012Q1

REPORT INFORMATION
  Report Type: 
  Country: None (occurrence: None)
  Receive Date: 20120319
  Receipt Date: 20120308
  Transmission Date: 20120608
  Serious: Yes (Other)
  Sender: FDA-Public Use
  Company Number: AUR-APL-2012-01343

PATIENT
  Age: 13 Year
  Sex: Male

DRUGS (2)
  1. SERTRALINE HYDROCHLORIDE [Suspect]
     Indication: OBSESSIVE-COMPULSIVE DISORDER
     Dosage: (25 MG), UNKNOWN, (50 MG), UNKNOWN
  2. SERTRALINE HYDROCHLORIDE [Suspect]
     Indication: DEPRESSED MOOD
     Dosage: (25 MG), UNKNOWN, (50 MG), UNKNOWN

REACTIONS (2)
  - DEPRESSION [None]
  - ANAL HAEMORRHAGE [None]
